FAERS Safety Report 10875306 (Version 1)
Quarter: 2015Q1

REPORT INFORMATION
  Report Type: Spontaneous
  Country: US (occurrence: US)
  Receive Date: 20150227
  Receipt Date: 20150227
  Transmission Date: 20150721
  Serious: No
  Sender: FDA-Public Use
  Company Number: US-ASTRAZENECA-2015SE02712

PATIENT
  Sex: Female

DRUGS (4)
  1. BYETTA [Suspect]
     Active Substance: EXENATIDE
     Route: 058
  2. BYETTA [Suspect]
     Active Substance: EXENATIDE
     Route: 058
     Dates: end: 2013
  3. BYDUREON [Suspect]
     Active Substance: EXENATIDE
     Indication: PRODUCT USED FOR UNKNOWN INDICATION
     Route: 058
     Dates: start: 2014, end: 2014
  4. BYETTA [Suspect]
     Active Substance: EXENATIDE
     Route: 058

REACTIONS (5)
  - Nausea [Unknown]
  - Blood glucose decreased [Unknown]
  - Drug dose omission [Unknown]
  - Blood glucose increased [Unknown]
  - Weight decreased [Unknown]
